FAERS Safety Report 10579876 (Version 2)
Quarter: 2014Q4

REPORT INFORMATION
  Report Type: Spontaneous
  Country: DE (occurrence: DE)
  Receive Date: 20141112
  Receipt Date: 20141112
  Transmission Date: 20150529
  Serious: Yes (Other)
  Sender: FDA-Public Use
  Company Number: DE-GLAXOSMITHKLINE-DE2014GSK004739

PATIENT
  Age: 34 Year
  Sex: Female

DRUGS (2)
  1. LAMICTAL [Suspect]
     Active Substance: LAMOTRIGINE
     Indication: BIPOLAR DISORDER
     Dosage: 200 MG, QD
     Dates: start: 2003
  2. OESTROPROGESTATIVE CONTRACEPTION [Suspect]
     Active Substance: ESTROGENS\PROGESTERONE
     Indication: CONTRACEPTION

REACTIONS (4)
  - Unintended pregnancy [Unknown]
  - Drug interaction [Unknown]
  - Abortion spontaneous [Unknown]
  - Exposure during pregnancy [Unknown]
